FAERS Safety Report 25045817 (Version 2)
Quarter: 2025Q2

REPORT INFORMATION
  Report Type: Report from Study
  Country: BR (occurrence: BR)
  Receive Date: 20250306
  Receipt Date: 20250401
  Transmission Date: 20250717
  Serious: Yes (Other)
  Sender: NOVARTIS
  Company Number: BR-002147023-NVSC2024BR246968

PATIENT
  Sex: Female

DRUGS (1)
  1. COSENTYX [Suspect]
     Active Substance: SECUKINUMAB
     Indication: Product used for unknown indication
     Route: 065

REACTIONS (19)
  - Alopecia [Not Recovered/Not Resolved]
  - Skin exfoliation [Unknown]
  - Onychomadesis [Unknown]
  - Pruritus [Not Recovered/Not Resolved]
  - Wound [Not Recovered/Not Resolved]
  - Disease recurrence [Unknown]
  - Headache [Not Recovered/Not Resolved]
  - Skin haemorrhage [Not Recovered/Not Resolved]
  - Nail psoriasis [Not Recovered/Not Resolved]
  - Lichen planus [Unknown]
  - Pigmentation disorder [Unknown]
  - Psoriasis [Not Recovered/Not Resolved]
  - Nail disorder [Not Recovered/Not Resolved]
  - Onychalgia [Unknown]
  - Disorientation [Unknown]
  - Bacterial infection [Recovered/Resolved]
  - Mass [Unknown]
  - Self esteem decreased [Unknown]
  - Nervousness [Unknown]
